FAERS Safety Report 4789792-X (Version None)
Quarter: 2005Q4

REPORT INFORMATION
  Report Type: 
  Country: None (occurrence: None)
  Receive Date: 20051006
  Receipt Date: 20040216
  Transmission Date: 20060501
  Serious: Yes (Disabling)
  Sender: FDA-Public Use
  Company Number: NZ-GLAXOSMITHKLINE-B0323439A

PATIENT
  Age: 48 Year
  Sex: Female

DRUGS (2)
  1. FLIXOTIDE [Suspect]
     Indication: ASTHMA
     Dosage: 250MG TWICE PER DAY
     Route: 055
     Dates: start: 20030812, end: 20040210
  2. VENTOLIN [Concomitant]
     Dosage: 200MCG TWICE PER DAY
     Route: 055

REACTIONS (22)
  - ABDOMINAL PAIN UPPER [None]
  - ALLERGIC GRANULOMATOUS ANGIITIS [None]
  - ANGINA PECTORIS [None]
  - ASTHENIA [None]
  - CATARACT [None]
  - COUGH [None]
  - DRY EYE [None]
  - DYSPNOEA [None]
  - EMBOLISM [None]
  - EYE PAIN [None]
  - FASCIITIS [None]
  - HEART SOUNDS ABNORMAL [None]
  - HYPOAESTHESIA [None]
  - OPTIC NERVE INJURY [None]
  - PAIN IN EXTREMITY [None]
  - PALPITATIONS [None]
  - PARAESTHESIA [None]
  - RETINAL INFARCTION [None]
  - SKIN LESION [None]
  - SYNCOPE VASOVAGAL [None]
  - VASCULITIS [None]
  - VITREOUS DETACHMENT [None]
